FAERS Safety Report 8524145-X (Version None)
Quarter: 2012Q3

REPORT INFORMATION
  Report Type: 
  Country: None (occurrence: None)
  Receive Date: 20120720
  Receipt Date: 20120718
  Transmission Date: 20120928
  Serious: Yes (Hospitalization)
  Sender: FDA-Public Use
  Company Number: RU-SANOFI-AVENTIS-2012SA046466

PATIENT
  Age: 67 Year
  Sex: Female
  Weight: 82 kg

DRUGS (8)
  1. AMLODIPINE [Concomitant]
     Route: 048
  2. PLAVIX [Suspect]
     Indication: THROMBOSIS PROPHYLAXIS
     Route: 048
     Dates: start: 20120517
  3. CARDIKET [Concomitant]
     Route: 048
  4. PLAVIX [Suspect]
     Route: 048
     Dates: start: 20110801, end: 20120126
  5. CLOPIDOGREL [Suspect]
     Indication: THROMBOSIS PROPHYLAXIS
     Route: 048
     Dates: start: 20120126, end: 20120517
  6. ROSUVASTATIN [Concomitant]
     Route: 048
  7. ACETYLSALICYLIC ACID/MAGNESIUM [Concomitant]
     Indication: THROMBOSIS PROPHYLAXIS
     Route: 048
     Dates: start: 20110801
  8. CONCOR [Concomitant]
     Route: 048

REACTIONS (2)
  - CORONARY ARTERY RESTENOSIS [None]
  - HAEMORRHOIDAL HAEMORRHAGE [None]
